FAERS Safety Report 9919109 (Version 4)
Quarter: 2014Q2

REPORT INFORMATION
  Report Type: Spontaneous
  Country: DE (occurrence: DE)
  Receive Date: 20140224
  Receipt Date: 20140429
  Transmission Date: 20141212
  Serious: Yes (Death, Hospitalization)
  Sender: FDA-Public Use
  Company Number: DE-GE HEALTHCARE MEDICAL DIAGNOSTICS-OMPQ-PR-1402S-0155

PATIENT
  Age: 70 Year
  Sex: Male
  Weight: 86 kg

DRUGS (2)
  1. ACCUPAQUE [Suspect]
     Indication: INVESTIGATION
     Route: 042
     Dates: start: 20140214, end: 20140214
  2. ACCUPAQUE [Suspect]
     Indication: DIAGNOSTIC PROCEDURE

REACTIONS (16)
  - Pharyngeal oedema [Fatal]
  - Swelling [Fatal]
  - Rash [Fatal]
  - Heart rate increased [Fatal]
  - Flushing [Fatal]
  - Dysarthria [Fatal]
  - Hemiparesis [Fatal]
  - Pneumonia aspiration [Fatal]
  - Pyrexia [Fatal]
  - Cerebral artery embolism [Fatal]
  - Cerebellar infarction [Fatal]
  - Contrast media allergy [Fatal]
  - Disturbance in attention [Fatal]
  - Mental disorder [Fatal]
  - Brain stem infarction [Fatal]
  - Brain oedema [Fatal]
